FAERS Safety Report 13283831 (Version 1)
Quarter: 2017Q1

REPORT INFORMATION
  Report Type: Spontaneous
  Country: US (occurrence: US)
  Receive Date: 20170301
  Receipt Date: 20170301
  Transmission Date: 20170428
  Serious: Yes (Other)
  Sender: FDA-Public Use
  Company Number: US-INCYTE CORPORATION-2017IN001294

PATIENT
  Age: 45 Year
  Sex: Female

DRUGS (1)
  1. JAKAFI [Suspect]
     Active Substance: RUXOLITINIB
     Dosage: 10 MG, BID
     Route: 048
     Dates: start: 20161021

REACTIONS (3)
  - Pulmonary embolism [Unknown]
  - Rib fracture [Unknown]
  - Spinal fracture [Unknown]

NARRATIVE: CASE EVENT DATE: 20170220
